FAERS Safety Report 9785753 (Version 3)
Quarter: 2014Q3

REPORT INFORMATION
  Report Type: Spontaneous
  Country: US (occurrence: US)
  Receive Date: 20131227
  Receipt Date: 20140828
  Transmission Date: 20150326
  Serious: Yes (Life-Threatening, Hospitalization)
  Sender: FDA-Public Use
  Company Number: US-BAYER-2013-157993

PATIENT
  Age: 33 Year
  Sex: Female

DRUGS (1)
  1. MIRENA [Suspect]
     Active Substance: LEVONORGESTREL
     Indication: CONTRACEPTION
     Dosage: 20 MCG/24HR, CONT
     Route: 015
     Dates: start: 20090416, end: 20090508

REACTIONS (13)
  - Emotional distress [None]
  - Uterine perforation [None]
  - General physical health deterioration [None]
  - Injury [None]
  - Pain [None]
  - Abdominal discomfort [None]
  - Pelvic discomfort [None]
  - Abdominal pain lower [None]
  - Anxiety [None]
  - Anhedonia [None]
  - Musculoskeletal discomfort [None]
  - Back pain [None]
  - Pelvic pain [None]

NARRATIVE: CASE EVENT DATE: 20090416
